FAERS Safety Report 20092090 (Version 1)
Quarter: 2021Q4

REPORT INFORMATION
  Report Type: Spontaneous
  Country: US (occurrence: None)
  Receive Date: 20211119
  Receipt Date: 20211119
  Transmission Date: 20220303
  Serious: Yes (Hospitalization)
  Sender: FDA-Public Use
  Company Number: None

PATIENT
  Sex: Female

DRUGS (23)
  1. BOSULIF [Suspect]
     Active Substance: BOSUTINIB MONOHYDRATE
     Indication: Leukaemia
     Route: 048
     Dates: start: 20210128
  2. ALPRAZOLAM [Concomitant]
     Active Substance: ALPRAZOLAM
  3. AMBIEN [Concomitant]
     Active Substance: ZOLPIDEM TARTRATE
  4. BENADRYL [Concomitant]
     Active Substance: DIPHENHYDRAMINE HYDROCHLORIDE
  5. CELEBREX [Concomitant]
     Active Substance: CELECOXIB
  6. COREG [Concomitant]
     Active Substance: CARVEDILOL
  7. FLECTOR DIS [Concomitant]
  8. FLONASE ALGY SPR [Concomitant]
  9. FOLIC ACID [Concomitant]
     Active Substance: FOLIC ACID
  10. GABAPENTIN CAP [Concomitant]
  11. LIVALO TAB [Concomitant]
  12. LETEIN CAP [Concomitant]
  13. MELATONIN TAB [Concomitant]
  14. OMEGA-3 CAP [Concomitant]
  15. RED YEAST CAP [Concomitant]
  16. RESTASIS EMU [Concomitant]
  17. RITUXAN INJ [Concomitant]
  18. SINGULAIR [Concomitant]
  19. SYNTHROID TAB [Concomitant]
  20. VESICARE TAB [Concomitant]
  21. VIVELLE-DOT DIS [Concomitant]
  22. VOLTAREN [Concomitant]
     Active Substance: DICLOFENAC SODIUM
  23. ZALEPLON CAP [Concomitant]

REACTIONS (1)
  - Cardiac operation [None]
